FAERS Safety Report 9236782 (Version 1)
Quarter: 2013Q2

REPORT INFORMATION
  Report Type: Spontaneous
  Country: DE (occurrence: DE)
  Receive Date: 20130416
  Receipt Date: 20130416
  Transmission Date: 20140414
  Serious: Yes (Other)
  Sender: FDA-Public Use
  Company Number: DE-BRACCO-001309

PATIENT
  Age: 48 Year
  Sex: Male

DRUGS (6)
  1. PROHANCE [Suspect]
     Indication: NUCLEAR MAGNETIC RESONANCE IMAGING
     Route: 042
     Dates: start: 20130111, end: 20130111
  2. JURNISTA [Concomitant]
  3. IBUPROFEN [Concomitant]
  4. LYRICA [Concomitant]
  5. NOVALGIN [Concomitant]
  6. MOVICOL [Concomitant]

REACTIONS (1)
  - Anaphylactic shock [Recovered/Resolved]
